FAERS Safety Report 4624808-2 (Version None)
Quarter: 2005Q2

REPORT INFORMATION
  Report Type: 
  Country: None (occurrence: None)
  Receive Date: 20050401
  Receipt Date: 20030414
  Transmission Date: 20051028
  Serious: Yes (Hospitalization, Other)
  Sender: FDA-Public Use
  Company Number: FR-SANOFI-SYNTHELABO-F01200300454

PATIENT
  Sex: Female
  Weight: 55 kg

DRUGS (7)
  1. RASBURICASE [Suspect]
     Dosage: 10.5 MG
     Route: 042
     Dates: start: 20030115, end: 20030118
  2. LYSANXIA 10 [Concomitant]
     Dosage: UNK
     Route: 065
  3. CYCLOPHOSPHAMIDE [Concomitant]
     Dates: start: 20030116, end: 20030116
  4. DOXORUBICIN HCL [Concomitant]
     Dates: start: 20030116, end: 20030116
  5. VINCRISTINE [Concomitant]
     Dates: start: 20030116, end: 20030116
  6. PREDNISONE [Concomitant]
     Dates: start: 20030116, end: 20030116
  7. RITUXIMAB [Concomitant]
     Dates: start: 20030116, end: 20030116

REACTIONS (5)
  - BRONCHOSPASM [None]
  - CHILLS [None]
  - DYSPNOEA [None]
  - HYPERTHERMIA [None]
  - HYPOTENSION [None]
